FAERS Safety Report 10254632 (Version 2)
Quarter: 2014Q2

REPORT INFORMATION
  Report Type: Spontaneous
  Country: CH (occurrence: CH)
  Receive Date: 20140624
  Receipt Date: 20140624
  Transmission Date: 20141212
  Serious: Yes (Hospitalization)
  Sender: FDA-Public Use
  Company Number: CH-ROCHE-1401374

PATIENT
  Age: 48 Year
  Sex: Male
  Weight: 73.6 kg

DRUGS (1)
  1. MABTHERA [Suspect]
     Indication: RHEUMATOID ARTHRITIS
     Dosage: LAST INFUSION IN MAR/2014
     Route: 042
     Dates: start: 20110201

REACTIONS (6)
  - Lymphadenopathy [Not Recovered/Not Resolved]
  - Splenomegaly [Not Recovered/Not Resolved]
  - Hepatomegaly [Not Recovered/Not Resolved]
  - Myalgia [Unknown]
  - Pyrexia [Unknown]
  - Deep vein thrombosis [Unknown]
